FAERS Safety Report 7530373-2 (Version None)
Quarter: 2011Q2

REPORT INFORMATION
  Report Type: 
  Country: None (occurrence: None)
  Receive Date: 20110607
  Receipt Date: 20110526
  Transmission Date: 20111010
  Serious: Yes (Hospitalization)
  Sender: FDA-Public Use
  Company Number: DE-ELI_LILLY_AND_COMPANY-DE201105007831

PATIENT
  Sex: Female

DRUGS (13)
  1. FORTEO [Suspect]
     Indication: OSTEOPOROSIS
     Dosage: UNK, QD
     Route: 058
     Dates: start: 20101007
  2. VITAMIN D [Concomitant]
     Dosage: UNK, UNKNOWN
     Route: 065
  3. LEVOCETIRIZINE DIHYDROCHLORIDE [Concomitant]
     Dosage: UNK, UNKNOWN
     Route: 065
  4. FENTANYL [Concomitant]
     Dosage: UNK, UNKNOWN
     Route: 065
  5. PLAVIX [Concomitant]
     Dosage: UNK, UNKNOWN
     Route: 065
  6. CALCIUM CARBONATE [Concomitant]
     Dosage: UNK, UNKNOWN
     Route: 065
  7. MIRTAZAPIN [Concomitant]
     Dosage: UNK, UNKNOWN
     Route: 065
     Dates: start: 20101201
  8. THEOPHYLLINE [Concomitant]
     Dosage: UNK, UNKNOWN
     Route: 065
  9. CANDESARTAN CILEXETIL [Concomitant]
     Dosage: UNK, UNKNOWN
     Route: 065
  10. PREDNI M [Concomitant]
     Dosage: UNK, UNKNOWN
     Route: 065
  11. LEVOTHYROXINE SODIUM [Concomitant]
     Dosage: UNK, UNKNOWN
     Route: 065
  12. OXYCODON [Concomitant]
     Dosage: UNK, UNKNOWN
     Route: 065
  13. OMEPRAZOLE [Concomitant]
     Dosage: UNK, UNKNOWN
     Route: 065

REACTIONS (1)
  - SPINAL FRACTURE [None]
